FAERS Safety Report 18298602 (Version 1)
Quarter: 2020Q3

REPORT INFORMATION
  Report Type: Spontaneous
  Country: US (occurrence: US)
  Receive Date: 20200922
  Receipt Date: 20200922
  Transmission Date: 20201103
  Serious: No
  Sender: FDA-Public Use
  Company Number: US-ASTRAZENECA-2020SF19746

PATIENT
  Sex: Female
  Weight: 103 kg

DRUGS (1)
  1. SYMBICORT [Suspect]
     Active Substance: BUDESONIDE\FORMOTEROL FUMARATE DIHYDRATE
     Indication: ASTHMA
     Dosage: 160/4.5MCG 1 PUFF TWICE A DAY
     Route: 055
     Dates: start: 20200916

REACTIONS (3)
  - Product prescribing issue [Unknown]
  - Illness [Unknown]
  - Vomiting [Unknown]
